FAERS Safety Report 5274053-5 (Version None)
Quarter: 2007Q1

REPORT INFORMATION
  Report Type: 
  Country: None (occurrence: None)
  Receive Date: 20061218
  Receipt Date: 20060313
  Transmission Date: 20070707
  Serious: Yes (Other)
  Sender: FDA-Public Use
  Company Number: 0048

PATIENT
  Sex: Female
  Weight: 72.5755 kg

DRUGS (1)
  1. MEPIVACAINE 3%/NOVOCOL PHARMACEUTICAL OF CANADA, INC [Suspect]
     Indication: NERVE BLOCK

REACTIONS (3)
  - EYELID FUNCTION DISORDER [None]
  - HYPOAESTHESIA [None]
  - PARALYSIS [None]
